FAERS Safety Report 12515825 (Version 1)
Quarter: 2016Q2

REPORT INFORMATION
  Report Type: Spontaneous
  Country: FR (occurrence: FR)
  Receive Date: 20160630
  Receipt Date: 20160630
  Transmission Date: 20160815
  Serious: Yes (Other)
  Sender: FDA-Public Use
  Company Number: FR-JNJFOC-20160621969

PATIENT
  Age: 64 Year
  Sex: Male

DRUGS (1)
  1. EPITOMAX [Suspect]
     Active Substance: TOPIRAMATE
     Indication: ESSENTIAL TREMOR
     Route: 048
     Dates: start: 201412, end: 201412

REACTIONS (4)
  - Product use issue [Unknown]
  - Off label use [Unknown]
  - Lung disorder [Unknown]
  - Sepsis [Unknown]

NARRATIVE: CASE EVENT DATE: 201412
